FAERS Safety Report 4604995-2 (Version None)
Quarter: 2005Q1

REPORT INFORMATION
  Report Type: 
  Country: None (occurrence: None)
  Receive Date: 20050310
  Receipt Date: 20050310
  Transmission Date: 20050727
  Serious: Yes (Other)
  Sender: FDA-Public Use
  Company Number: None

PATIENT
  Age: 43 Year
  Sex: Male
  Weight: 88.4514 kg

DRUGS (1)
  1. FENTANYL PATCH (2 BOXES OF 5 ) [Suspect]
     Indication: BACK PAIN
     Dosage: 75 MCG Q 72H

REACTIONS (3)
  - DECREASED APPETITE [None]
  - MOVEMENT DISORDER [None]
  - PAIN [None]
